FAERS Safety Report 16232454 (Version 1)
Quarter: 2019Q2

REPORT INFORMATION
  Report Type: Spontaneous
  Country: FR (occurrence: FR)
  Receive Date: 20190424
  Receipt Date: 20190424
  Transmission Date: 20190711
  Serious: Yes (Hospitalization, Other)
  Sender: FDA-Public Use
  Company Number: FR-TAKEDA-2019TEU004778

PATIENT
  Age: 37 Year
  Sex: Male

DRUGS (5)
  1. LANSOPRAZOLE. [Suspect]
     Active Substance: LANSOPRAZOLE
     Indication: PROPHYLAXIS
     Dosage: UNK
     Route: 042
     Dates: start: 20190131, end: 20190219
  2. TAZOCILLINE [Suspect]
     Active Substance: PIPERACILLIN SODIUM\TAZOBACTAM SODIUM
     Indication: INFECTION
     Dosage: 12 GRAM
     Route: 042
     Dates: start: 20190105, end: 20190216
  3. SULBACTAM [Suspect]
     Active Substance: SULBACTAM
     Indication: INFECTION
     Dosage: UNK
     Route: 042
  4. MEROPENEM ANHYDROUS [Suspect]
     Active Substance: MEROPENEM ANHYDROUS
     Indication: INFECTION
     Dosage: UNK
     Route: 042
     Dates: start: 20190108, end: 20190204
  5. VANCOMYCINE [Suspect]
     Active Substance: VANCOMYCIN
     Indication: INFECTION
     Dosage: UNK
     Route: 042
     Dates: start: 20190118, end: 20190205

REACTIONS (2)
  - Immune thrombocytopenic purpura [Recovered/Resolved]
  - Drug reaction with eosinophilia and systemic symptoms [Not Recovered/Not Resolved]

NARRATIVE: CASE EVENT DATE: 201902
